FAERS Safety Report 16742558 (Version 3)
Quarter: 2021Q3

REPORT INFORMATION
  Report Type: Report from Study
  Country: DE (occurrence: DE)
  Receive Date: 20190826
  Receipt Date: 20210809
  Transmission Date: 20211014
  Serious: Yes (Other)
  Sender: FDA-Public Use
  Company Number: DE-BIOGEN-2019BI00778524

PATIENT
  Sex: Female
  Weight: 63 kg

DRUGS (5)
  1. AVONEX PEN [Suspect]
     Active Substance: INTERFERON BETA-1A
     Indication: MULTIPLE SCLEROSIS
     Route: 030
     Dates: start: 20120201, end: 201809
  2. AVONEX PEN [Suspect]
     Active Substance: INTERFERON BETA-1A
  3. AVONEX PEN [Suspect]
     Active Substance: INTERFERON BETA-1A
     Route: 030
     Dates: start: 201909
  4. FOLIO FORTE [Concomitant]
     Active Substance: FOLIC ACID\VITAMINS
     Indication: PROPHYLAXIS
     Route: 065
     Dates: start: 201809, end: 201907
  5. AVONEX PEN [Suspect]
     Active Substance: INTERFERON BETA-1A

REACTIONS (6)
  - Liver function test increased [Unknown]
  - Dyspepsia [Recovered/Resolved]
  - High risk pregnancy [Unknown]
  - Retained placenta or membranes [Unknown]
  - Cholestasis of pregnancy [Recovered/Resolved]
  - Maternal exposure during pregnancy [Recovered/Resolved]

NARRATIVE: CASE EVENT DATE: 2019
